FAERS Safety Report 6754873-8 (Version None)
Quarter: 2010Q2

REPORT INFORMATION
  Report Type: 
  Country: None (occurrence: None)
  Receive Date: 20100524
  Receipt Date: 20100204
  Transmission Date: 20101027
  Serious: No
  Sender: FDA-Public Use
  Company Number: 006300

PATIENT
  Sex: Female
  Weight: 61.3 kg

DRUGS (5)
  1. CIMZIA [Suspect]
     Indication: CROHN'S DISEASE
     Dosage: 400 MG MONTHLY SUBCUTANEOUS
     Route: 058
     Dates: start: 20091101
  2. ASACOL [Concomitant]
  3. FISH OIL [Concomitant]
  4. MULTIVITAMIN /01229101/ [Concomitant]
  5. IRON [Concomitant]

REACTIONS (2)
  - INCORRECT DOSE ADMINISTERED [None]
  - WRONG TECHNIQUE IN DRUG USAGE PROCESS [None]
